FAERS Safety Report 7265359-9 (Version None)
Quarter: 2011Q1

REPORT INFORMATION
  Report Type: 
  Country: None (occurrence: None)
  Receive Date: 20110131
  Receipt Date: 20110121
  Transmission Date: 20110831
  Serious: Yes (Other)
  Sender: FDA-Public Use
  Company Number: US-SANOFI-AVENTIS-2011SA005045

PATIENT
  Age: 61 Year
  Sex: Male

DRUGS (5)
  1. TOPROL-XL [Concomitant]
  2. NITROGLYCERIN [Concomitant]
  3. ISOSORBIDE DINITRATE [Concomitant]
  4. NORVASC [Concomitant]
  5. CLOPIDOGREL BISULFATE [Suspect]
     Route: 065
     Dates: end: 20110101

REACTIONS (4)
  - LOSS OF CONSCIOUSNESS [None]
  - PNEUMONIA [None]
  - DYSPNOEA [None]
  - COUGH [None]
